FAERS Safety Report 5398451-4 (Version None)
Quarter: 2007Q3

REPORT INFORMATION
  Report Type: 
  Country: None (occurrence: None)
  Receive Date: 20070725
  Receipt Date: 20070709
  Transmission Date: 20080115
  Serious: Yes (Disabling, Other)
  Sender: FDA-Public Use
  Company Number: 07022009

PATIENT
  Age: 65 Year
  Sex: Female

DRUGS (1)
  1. CLOBETASOL PROPIONATE [Suspect]
     Indication: RASH
     Dosage: 1APP,BID;TOPICAL
     Route: 061

REACTIONS (4)
  - ERYTHEMA [None]
  - POST INFLAMMATORY PIGMENTATION CHANGE [None]
  - SCAR [None]
  - SKIN BURNING SENSATION [None]
